FAERS Safety Report 7632968-4 (Version None)
Quarter: 2011Q3

REPORT INFORMATION
  Report Type: 
  Country: None (occurrence: None)
  Receive Date: 20110725
  Receipt Date: 20110713
  Transmission Date: 20111222
  Serious: Yes (Hospitalization)
  Sender: FDA-Public Use
  Company Number: JP-AMGEN-US249548

PATIENT
  Age: 86 Year
  Sex: Female
  Weight: 39 kg

DRUGS (18)
  1. BROTIZOLAM [Concomitant]
     Dosage: 1 UNK, QD
     Route: 048
  2. ALFACALCIDOL [Concomitant]
     Dosage: UNK
     Route: 048
  3. DICLOFENAC SODIUM [Concomitant]
     Dosage: UNK
     Route: 065
  4. ENBREL [Suspect]
     Dosage: UNK
     Dates: start: 20080201
  5. LANSOPRAZOLE [Concomitant]
     Dosage: UNK
     Route: 048
  6. WASSER V GRAN. [Concomitant]
     Dosage: UNK
     Route: 048
  7. CEPHADOL [Concomitant]
     Dosage: UNK
     Route: 048
  8. KETOPROFEN [Concomitant]
     Dosage: UNK UNK, UNK
     Route: 065
  9. ENBREL [Suspect]
     Indication: RHEUMATOID ARTHRITIS
     Dosage: 25 MG, QWK
     Route: 058
     Dates: start: 20070825, end: 20070928
  10. BACILLUS SUBTILIS/LACTOBACILLUS ACIDOPHILUS/STREPTOCOCCUS FAECALIS [Concomitant]
     Dosage: UNK
     Route: 048
  11. AMLODIPINE BESYLATE [Concomitant]
     Dosage: UNK
     Route: 048
  12. VALSARTAN [Concomitant]
     Dosage: UNK
     Route: 048
  13. MISOPROSTOL [Concomitant]
     Dosage: UNK
     Route: 065
  14. ASPIRIN [Concomitant]
     Dosage: UNK
     Route: 048
     Dates: end: 20070101
  15. ISONIAZID [Suspect]
     Indication: ANTIBIOTIC PROPHYLAXIS
     Dosage: 100 MG, QD
     Route: 048
     Dates: start: 20070701, end: 20070831
  16. ISONIAZID [Suspect]
     Dosage: 200 MG, QD
     Route: 048
     Dates: start: 20070901, end: 20070928
  17. FLAVITAN [Concomitant]
     Dosage: UNK UNK, UNK
     Route: 065
  18. INDOMETHACIN [Concomitant]
     Dosage: UNK UNK, UNK
     Route: 065

REACTIONS (3)
  - LIVER DISORDER [None]
  - INTERSTITIAL LUNG DISEASE [None]
  - DEAFNESS [None]
